FAERS Safety Report 13008932 (Version 1)
Quarter: 2016Q4

REPORT INFORMATION
  Report Type: Report from Study
  Country: JP (occurrence: JP)
  Receive Date: 20161208
  Receipt Date: 20161208
  Transmission Date: 20170207
  Serious: Yes (Other)
  Sender: FDA-Public Use
  Company Number: JP-REGENERON PHARMACEUTICALS, INC.-2016-24736

PATIENT

DRUGS (1)
  1. EYLEA [Suspect]
     Active Substance: AFLIBERCEPT
     Indication: DIABETIC RETINAL OEDEMA
     Dosage: 1 INJECTION, Q1MON (HAS RECEIVED 12 INJECTIONS)
     Route: 031

REACTIONS (3)
  - Sudden visual loss [Unknown]
  - Nausea [Unknown]
  - Intra-ocular injection [Unknown]
